FAERS Safety Report 5614118-9 (Version None)
Quarter: 2008Q1

REPORT INFORMATION
  Report Type: 
  Country: None (occurrence: None)
  Receive Date: 20080205
  Receipt Date: 20080124
  Transmission Date: 20080703
  Serious: Yes (Hospitalization, Other)
  Sender: FDA-Public Use
  Company Number: US-PFIZER INC-2008010603

PATIENT
  Sex: Female
  Weight: 53.1 kg

DRUGS (4)
  1. CHANTIX [Suspect]
     Indication: SMOKING CESSATION THERAPY
     Dates: start: 20071027, end: 20071201
  2. SYNTHROID [Concomitant]
  3. LIPITOR [Concomitant]
  4. ATENOLOL [Concomitant]

REACTIONS (7)
  - ABDOMINAL PAIN UPPER [None]
  - DECREASED APPETITE [None]
  - DEHYDRATION [None]
  - DIARRHOEA [None]
  - GASTRIC ULCER [None]
  - NAUSEA [None]
  - VOMITING [None]
